FAERS Safety Report 13789001 (Version 1)
Quarter: 2017Q3

REPORT INFORMATION
  Report Type: Spontaneous
  Country: JP (occurrence: JP)
  Receive Date: 20170725
  Receipt Date: 20170725
  Transmission Date: 20171127
  Serious: Yes (Other)
  Sender: FDA-Public Use
  Company Number: JP-PFIZER INC-2017315876

PATIENT
  Age: 75 Year
  Sex: Female

DRUGS (1)
  1. METHOTREXATE SODIUM. [Suspect]
     Active Substance: METHOTREXATE SODIUM
     Indication: RHEUMATOID ARTHRITIS
     Dosage: 14 MG, UNK
     Route: 048

REACTIONS (3)
  - Cytomegalovirus chorioretinitis [Recovered/Resolved]
  - Viral uveitis [Recovered/Resolved]
  - Lymphoproliferative disorder [Unknown]
